FAERS Safety Report 7596108-2 (Version None)
Quarter: 2011Q3

REPORT INFORMATION
  Report Type: 
  Country: None (occurrence: None)
  Receive Date: 20110707
  Receipt Date: 20110630
  Transmission Date: 20111222
  Serious: Yes (Other)
  Sender: FDA-Public Use
  Company Number: DE-PFIZER INC-2011118416

PATIENT
  Age: 77 Year
  Sex: Female
  Weight: 64 kg

DRUGS (11)
  1. REVATIO [Suspect]
     Indication: PULMONARY ARTERIAL HYPERTENSION
     Dosage: 20 MG, 3X/DAY
     Route: 048
     Dates: start: 20091201
  2. LEVOTHYROXINE SODIUM [Concomitant]
     Dosage: 100 UG, 1X/DAY
  3. CALCIUM [Concomitant]
     Dosage: 1000 MG, 1X/DAY
  4. NOVAMINOSULFON [Concomitant]
     Dosage: 20 - 25 DROPS THREE TIMES
  5. EUNOVA [Concomitant]
  6. AROMASIN [Concomitant]
     Dosage: UNK
  7. MAGNESIUM VERLA DRAGEES [Concomitant]
     Dosage: 2 DF, AS NEEDED
  8. SIMVASTATIN [Concomitant]
     Dosage: 20 MG, 1X/DAY
  9. PROTELOS [Concomitant]
     Dosage: 2 G, 1X/DAY
  10. METOPROLOL SUCCINATE [Concomitant]
     Dosage: 47.5 MG, 2X/DAY
  11. COLECALCIFEROL [Concomitant]
     Dosage: 1000 IU, 1X/DAY

REACTIONS (5)
  - MULTIPLE CHEMICAL SENSITIVITY [None]
  - LOW DENSITY LIPOPROTEIN INCREASED [None]
  - APHASIA [None]
  - ANXIETY [None]
  - DEMENTIA [None]
